FAERS Safety Report 8252008-6 (Version None)
Quarter: 2012Q2

REPORT INFORMATION
  Report Type: 
  Country: None (occurrence: None)
  Receive Date: 20120402
  Receipt Date: 20120323
  Transmission Date: 20120825
  Serious: Yes (Other)
  Sender: FDA-Public Use
  Company Number: BR-FRI-1000029484

PATIENT
  Sex: Female
  Weight: 95 kg

DRUGS (4)
  1. ALPRAZOLAM [Concomitant]
     Indication: PANIC DISORDER
  2. ALPRAZOLAM [Concomitant]
     Indication: DEPRESSION
     Dosage: 1 MG
     Route: 048
     Dates: start: 20111001
  3. LEXAPRO [Suspect]
     Indication: DEPRESSION
     Dosage: 20 MG
     Route: 048
     Dates: start: 20120306, end: 20120322
  4. LEXAPRO [Suspect]
     Indication: PANIC DISORDER
     Dosage: 10 MG
     Route: 048
     Dates: start: 20120322, end: 20120327

REACTIONS (5)
  - HYPERHIDROSIS [None]
  - DYSPEPSIA [None]
  - VAGINAL HAEMORRHAGE [None]
  - BLOOD PRESSURE INCREASED [None]
  - PAIN IN EXTREMITY [None]
